FAERS Safety Report 23346557 (Version 1)
Quarter: 2023Q4

REPORT INFORMATION
  Report Type: Spontaneous
  Country: US (occurrence: US)
  Receive Date: 20231228
  Receipt Date: 20231228
  Transmission Date: 20240110
  Serious: Yes (Other)
  Sender: FDA-Public Use
  Company Number: US-AMNEAL PHARMACEUTICALS-2023-AMRX-04411

PATIENT
  Age: 33 Year
  Sex: Female

DRUGS (3)
  1. EMTRICITABINE AND TENOFOVIR DISOPROXIL FUMARATE [Suspect]
     Active Substance: EMTRICITABINE\TENOFOVIR DISOPROXIL FUMARATE
     Indication: HIV infection
     Dosage: 225 MILLIGRAM, DAILY
     Route: 048
     Dates: start: 20230926
  2. RITONAVIR [Suspect]
     Active Substance: RITONAVIR
     Indication: HIV infection
     Dosage: 100 MILLIGRAM, 1 /DAY
     Route: 048
     Dates: start: 20230926
  3. DARUNAVIR [Suspect]
     Active Substance: DARUNAVIR
     Indication: HIV infection
     Dosage: 800 MILLIGRAM, 1 /DAY
     Route: 048
     Dates: start: 20230926

REACTIONS (2)
  - Abortion spontaneous [Unknown]
  - Exposure during pregnancy [Unknown]

NARRATIVE: CASE EVENT DATE: 20231025
